FAERS Safety Report 4474730-X (Version None)
Quarter: 2004Q3

REPORT INFORMATION
  Report Type: 
  Country: None (occurrence: None)
  Receive Date: 20040923
  Receipt Date: 20040630
  Transmission Date: 20050211
  Serious: No
  Sender: FDA-Public Use
  Company Number: USA040771602

PATIENT
  Age: 70 Year
  Sex: Female
  Weight: 51 kg

DRUGS (1)
  1. FORTEO [Suspect]
     Indication: OSTEOPOROSIS
     Dates: start: 20040504

REACTIONS (9)
  - CHEST PAIN [None]
  - COUGH [None]
  - HEADACHE [None]
  - INFLUENZA [None]
  - PHARYNGOLARYNGEAL PAIN [None]
  - RESPIRATORY TRACT CONGESTION [None]
  - RHINORRHOEA [None]
  - TENSION HEADACHE [None]
  - WEIGHT INCREASED [None]
